FAERS Safety Report 10367640 (Version 1)
Quarter: 2014Q3

REPORT INFORMATION
  Report Type: Spontaneous
  Country: FI (occurrence: FI)
  Receive Date: 20140807
  Receipt Date: 20140807
  Transmission Date: 20150326
  Serious: Yes (Other)
  Sender: FDA-Public Use
  Company Number: FI-JNJFOC-20140719929

PATIENT
  Age: 34 Year
  Sex: Male

DRUGS (3)
  1. SERENASE [Suspect]
     Active Substance: HALOPERIDOL
     Indication: RESTLESSNESS
     Route: 065
  2. SERENASE [Suspect]
     Active Substance: HALOPERIDOL
     Indication: RESTLESSNESS
     Route: 065
  3. SERENASE [Suspect]
     Active Substance: HALOPERIDOL
     Indication: RESTLESSNESS
     Route: 065

REACTIONS (4)
  - Aphasia [Recovered/Resolved]
  - Abnormal behaviour [Recovered/Resolved]
  - Self injurious behaviour [Recovered/Resolved]
  - Abasia [Recovered/Resolved]
